FAERS Safety Report 23409513 (Version 2)
Quarter: 2024Q1

REPORT INFORMATION
  Report Type: Spontaneous
  Country: JP (occurrence: JP)
  Receive Date: 20240117
  Receipt Date: 20240123
  Transmission Date: 20240410
  Serious: Yes (Hospitalization, Other)
  Sender: FDA-Public Use
  Company Number: JP-MLMSERVICE-20240105-4757004-2

PATIENT
  Age: 73 Year
  Sex: Male

DRUGS (9)
  1. METHYLPREDNISOLONE SODIUM SUCCINATE [Suspect]
     Active Substance: METHYLPREDNISOLONE SODIUM SUCCINATE
     Indication: COVID-19 pneumonia
     Dosage: PULSE THERAPY
  2. METHYLPREDNISOLONE SODIUM SUCCINATE [Suspect]
     Active Substance: METHYLPREDNISOLONE SODIUM SUCCINATE
     Indication: Immunosuppressant drug therapy
  3. EDOXABAN TOSYLATE MONOHYDRATE [Suspect]
     Active Substance: EDOXABAN TOSYLATE MONOHYDRATE
     Indication: Anticoagulant therapy
     Dosage: UNK
     Route: 048
  4. EDOXABAN TOSYLATE MONOHYDRATE [Suspect]
     Active Substance: EDOXABAN TOSYLATE MONOHYDRATE
     Indication: COVID-19 pneumonia
  5. HEPARIN [Suspect]
     Active Substance: HEPARIN SODIUM
     Indication: Anticoagulant therapy
     Dosage: UNK
     Route: 042
  6. HEPARIN [Suspect]
     Active Substance: HEPARIN SODIUM
     Indication: COVID-19 pneumonia
  7. PREDNISOLONE [Suspect]
     Active Substance: PREDNISOLONE
     Indication: Immunosuppressant drug therapy
     Dosage: TAPERED DOSE
     Route: 048
  8. PREDNISOLONE [Suspect]
     Active Substance: PREDNISOLONE
     Indication: COVID-19 pneumonia
     Dosage: 30 MG, 1X/DAY(ON THE 11TH DAY OF HOSPITALIZATION)
     Route: 048
  9. PREDNISOLONE [Suspect]
     Active Substance: PREDNISOLONE
     Dosage: UNK
     Route: 048

REACTIONS (6)
  - Phagocytosis [Unknown]
  - Staphylococcal bacteraemia [Unknown]
  - Muscle haemorrhage [Recovered/Resolved]
  - Psoas abscess [Recovered/Resolved]
  - Cholecystitis acute [Unknown]
  - Off label use [Unknown]
